FAERS Safety Report 20760614 (Version 2)
Quarter: 2022Q2

REPORT INFORMATION
  Report Type: Spontaneous
  Country: CZ (occurrence: CZ)
  Receive Date: 20220428
  Receipt Date: 20220506
  Transmission Date: 20220720
  Serious: Yes (Other)
  Sender: FDA-Public Use
  Company Number: CZ-RECORDATI-2022001411

PATIENT
  Age: 64 Year
  Sex: Male

DRUGS (1)
  1. METOPROLOL [Suspect]
     Active Substance: METOPROLOL
     Indication: Hypertension
     Dosage: UNK
     Route: 065

REACTIONS (4)
  - Erectile dysfunction [Recovered/Resolved]
  - Depression [Unknown]
  - Peripheral coldness [Unknown]
  - Treatment noncompliance [Unknown]
